FAERS Safety Report 5319360-2 (Version None)
Quarter: 2007Q2

REPORT INFORMATION
  Report Type: 
  Country: None (occurrence: None)
  Receive Date: 20070508
  Receipt Date: 20070501
  Transmission Date: 20071010
  Serious: No
  Sender: FDA-Public Use
  Company Number: US-ELI_LILLY_AND_COMPANY-US200702004882

PATIENT
  Age: 51 Year
  Sex: Female
  Weight: 115.65 kg

DRUGS (3)
  1. BYETTA [Suspect]
     Indication: DIABETES MELLITUS NON-INSULIN-DEPENDENT
     Dosage: 10 UG, 2/D
     Route: 058
     Dates: start: 20051001
  2. GLUCOPHAGE [Concomitant]
     Dosage: UNK, UNKNOWN
  3. PROPRANOLOL [Concomitant]
     Dosage: UNK, UNKNOWN

REACTIONS (1)
  - UTERINE ENLARGEMENT [None]
